FAERS Safety Report 24249108 (Version 1)
Quarter: 2024Q3

REPORT INFORMATION
  Report Type: Spontaneous
  Country: NL (occurrence: US)
  Receive Date: 20240826
  Receipt Date: 20240826
  Transmission Date: 20241017
  Serious: Yes (Hospitalization)
  Sender: JOHNSON AND JOHNSON
  Company Number: NL-JNJFOC-20240849457

PATIENT
  Age: 4 Year
  Sex: Female

DRUGS (3)
  1. BENADRYL [Suspect]
     Active Substance: DIPHENHYDRAMINE HYDROCHLORIDE
     Indication: Seizure
     Dosage: FOUR TO FIVE ADULT BENADRYL PILLS SEVERAL TIMES DURING THE HOSPITAL STAY
     Route: 065
     Dates: start: 2022
  2. TRAZODONE [Suspect]
     Active Substance: TRAZODONE HYDROCHLORIDE
     Indication: Seizure
     Route: 065
     Dates: start: 2022
  3. HYDROXYZINE [Suspect]
     Active Substance: HYDROXYZINE HYDROCHLORIDE
     Indication: Seizure
     Route: 065
     Dates: start: 2022

REACTIONS (6)
  - Poisoning deliberate [Unknown]
  - Mydriasis [Unknown]
  - Dysstasia [Unknown]
  - Intentional product misuse to child [Unknown]
  - Tremor [Unknown]
  - Heart rate increased [Unknown]

NARRATIVE: CASE EVENT DATE: 20220101
